FAERS Safety Report 9178305 (Version 2)
Quarter: 2013Q2

REPORT INFORMATION
  Report Type: Spontaneous
  Country: US (occurrence: US)
  Receive Date: 20130321
  Receipt Date: 20130412
  Transmission Date: 20140414
  Serious: Yes (Death, Other)
  Sender: FDA-Public Use
  Company Number: US-ROCHE-1204653

PATIENT
  Age: 78 Year
  Sex: Female
  Weight: 51.3 kg

DRUGS (3)
  1. AVASTIN [Suspect]
     Indication: LUNG NEOPLASM MALIGNANT
     Route: 042
     Dates: start: 20130312, end: 20130312
  2. CARBOPLATIN [Concomitant]
     Indication: LUNG NEOPLASM MALIGNANT
     Route: 042
     Dates: start: 20130211, end: 20130312
  3. PACLITAXEL [Concomitant]
     Indication: LUNG NEOPLASM MALIGNANT
     Dosage: 3 WEEKS ON AND 1 WEEK OFF
     Route: 042
     Dates: start: 20130211, end: 20130312

REACTIONS (1)
  - Cardiac arrest [Fatal]
